FAERS Safety Report 25775091 (Version 2)
Quarter: 2025Q3

REPORT INFORMATION
  Report Type: Spontaneous
  Country: US (occurrence: US)
  Receive Date: 20250909
  Receipt Date: 20250916
  Transmission Date: 20251021
  Serious: Yes (Other)
  Sender: APELLIS PHARMACEUTICALS
  Company Number: US-APELLIS-2025-APL-0001683

PATIENT

DRUGS (9)
  1. PEGCETACOPLAN [Suspect]
     Active Substance: PEGCETACOPLAN
     Indication: Dry age-related macular degeneration
     Route: 031
     Dates: start: 20240308
  2. PILOCARPINE HYDROCHLORIDE [Suspect]
     Active Substance: PILOCARPINE HYDROCHLORIDE
     Indication: Glaucoma
     Dosage: 1 GTT QDAY OU
     Route: 047
  3. PILOCARPINE HYDROCHLORIDE [Suspect]
     Active Substance: PILOCARPINE HYDROCHLORIDE
     Dosage: BID OU
     Route: 047
  4. PAROXETINE [Concomitant]
     Active Substance: PAROXETINE
     Indication: Product used for unknown indication
  5. PREDNISOLONE ACETATE [Concomitant]
     Active Substance: PREDNISOLONE ACETATE
     Indication: Product used for unknown indication
     Route: 047
  6. CLONAZEPAM [Concomitant]
     Active Substance: CLONAZEPAM
     Indication: Product used for unknown indication
  7. PROPARACAINE HYDROCHLORIDE [Concomitant]
     Active Substance: PROPARACAINE HYDROCHLORIDE
     Indication: Product used for unknown indication
  8. PHENYLEPHRINE [Concomitant]
     Active Substance: PHENYLEPHRINE
     Indication: Product used for unknown indication
  9. TROPICAMIDE [Concomitant]
     Active Substance: TROPICAMIDE
     Indication: Product used for unknown indication

REACTIONS (16)
  - Neovascular age-related macular degeneration [Unknown]
  - Endophthalmitis [Recovering/Resolving]
  - Angle closure glaucoma [Recovering/Resolving]
  - Punctate keratitis [Unknown]
  - Uveitis [Recovering/Resolving]
  - Toxic anterior segment syndrome [Unknown]
  - Macular dystrophy congenital [Not Recovered/Not Resolved]
  - Product quality issue [Unknown]
  - Aqueous misdirection [Recovering/Resolving]
  - Eye pain [Unknown]
  - Dry eye [Unknown]
  - Dry eye [Unknown]
  - Ophthalmic migraine [Not Recovered/Not Resolved]
  - Ophthalmic migraine [Not Recovered/Not Resolved]
  - Intentional product use issue [Recovered/Resolved]
  - Conjunctival haemorrhage [Unknown]

NARRATIVE: CASE EVENT DATE: 20250703
